FAERS Safety Report 4955900-0 (Version None)
Quarter: 2006Q1

REPORT INFORMATION
  Report Type: 
  Country: None (occurrence: None)
  Receive Date: 20060201
  Receipt Date: 20051026
  Transmission Date: 20060701
  Serious: No
  Sender: FDA-Public Use
  Company Number: FACT0500704

PATIENT
  Age: 45 Year

DRUGS (1)
  1. FACTIVE [Suspect]
     Indication: RESPIRATORY TRACT INFECTION BACTERIAL
     Dates: start: 20051001, end: 20051001

REACTIONS (1)
  - RASH GENERALISED [None]
